FAERS Safety Report 21762118 (Version 1)
Quarter: 2022Q4

REPORT INFORMATION
  Report Type: Spontaneous
  Country: HR (occurrence: HR)
  Receive Date: 20221221
  Receipt Date: 20221221
  Transmission Date: 20230113
  Serious: Yes (Other)
  Sender: FDA-Public Use
  Company Number: HR-BAYER-2022A147002

PATIENT
  Age: 78 Year
  Sex: Male

DRUGS (7)
  1. ACETAMINOPHEN [Suspect]
     Active Substance: ACETAMINOPHEN
     Indication: Product used for unknown indication
     Dosage: 1 ASNECESSARY (UNK UNK, PRN)
     Route: 065
  2. ASPIRIN [Suspect]
     Active Substance: ASPIRIN
     Indication: Product used for unknown indication
     Dosage: 2 DOSAGE FORM, QD (2 DF, QD)
     Route: 065
  3. DIAZEPAM [Concomitant]
     Active Substance: DIAZEPAM
     Dosage: 1 AS NECESSARY (UNK UNK, PRN)
     Route: 065
  4. AMLODIPINE\PERINDOPRIL [Concomitant]
     Active Substance: AMLODIPINE\PERINDOPRIL
     Dosage: UNK
     Route: 065
  5. ROSUVASTATIN [Concomitant]
     Active Substance: ROSUVASTATIN
     Dosage: 2 DOSAGE FORM (2 DF)
     Route: 065
  6. RAZAGILIN TEVA [Concomitant]
     Dosage: 2 DOSAGE FORM (2 DF)
     Route: 065
  7. PROPRANOLOL [Concomitant]
     Active Substance: PROPRANOLOL HYDROCHLORIDE
     Dosage: 2 DOSAGE FORM (2 DF)
     Route: 065

REACTIONS (15)
  - Cardiac failure [Unknown]
  - Cardiopulmonary failure [Unknown]
  - Atrial fibrillation [Unknown]
  - Parkinson^s disease [Unknown]
  - Cardiomegaly [Unknown]
  - Tremor [Unknown]
  - Hypertonia [Unknown]
  - Cardiac murmur [Unknown]
  - Tachyarrhythmia [Unknown]
  - Arteriosclerosis [Unknown]
  - Fatigue [Unknown]
  - Oedema peripheral [Unknown]
  - Blood pressure increased [Unknown]
  - Hypertension [Unknown]
  - Dyspnoea [Unknown]
